FAERS Safety Report 4831570-7 (Version None)
Quarter: 2005Q4

REPORT INFORMATION
  Report Type: 
  Country: None (occurrence: None)
  Receive Date: 20051118
  Receipt Date: 20050310
  Transmission Date: 20060501
  Serious: Yes (Hospitalization, Other)
  Sender: FDA-Public Use
  Company Number: US-MERCK-0503USA02051

PATIENT
  Age: 58 Year
  Sex: Female
  Weight: 91 kg

DRUGS (6)
  1. VIOXX [Suspect]
     Indication: RHEUMATOID ARTHRITIS
     Route: 048
     Dates: start: 19990101, end: 20040601
  2. VIOXX [Suspect]
     Route: 048
  3. CARDIZEM [Concomitant]
     Route: 065
     Dates: start: 19980101, end: 20031001
  4. PREMARIN [Concomitant]
     Route: 065
     Dates: start: 19940101, end: 20040101
  5. ULTRAM [Concomitant]
     Route: 065
     Dates: start: 19990401, end: 20000101
  6. DARVOCET-N 100 [Concomitant]
     Route: 065
     Dates: start: 20000101, end: 20050101

REACTIONS (20)
  - ANGINA UNSTABLE [None]
  - ASTHMA [None]
  - BREAST MICROCALCIFICATION [None]
  - BRONCHITIS [None]
  - CARPAL TUNNEL SYNDROME [None]
  - CEREBROVASCULAR ACCIDENT [None]
  - CHOLECYSTITIS [None]
  - CORONARY ARTERY DISEASE [None]
  - EMOTIONAL DISTRESS [None]
  - HYPERLIPIDAEMIA [None]
  - INTERVERTEBRAL DISC DEGENERATION [None]
  - LACUNAR INFARCTION [None]
  - LIPOMA [None]
  - MYOCARDIAL INFARCTION [None]
  - MYOCARDIAL ISCHAEMIA [None]
  - OEDEMA PERIPHERAL [None]
  - POLYP [None]
  - SLEEP DISORDER [None]
  - SPINAL COLUMN STENOSIS [None]
  - VULVOVAGINITIS TRICHOMONAL [None]
